FAERS Safety Report 7768788-X (Version None)
Quarter: 2011Q3

REPORT INFORMATION
  Report Type: 
  Country: None (occurrence: None)
  Receive Date: 20110922
  Receipt Date: 20100804
  Transmission Date: 20111222
  Serious: Yes (Hospitalization)
  Sender: FDA-Public Use
  Company Number: US-ASTRAZENECA-2010SE36409

PATIENT
  Age: 13 Year
  Sex: Male

DRUGS (5)
  1. SEROQUEL XR [Suspect]
     Indication: ANGER
     Route: 048
     Dates: start: 20100101
  2. SEROQUEL XR [Suspect]
     Indication: ASPERGER'S DISORDER
     Route: 048
     Dates: start: 20100101
  3. ABILIFY [Concomitant]
  4. SEROQUEL XR [Suspect]
     Indication: BIPOLAR DISORDER
     Route: 048
     Dates: start: 20100101
  5. SEROQUEL XR [Suspect]
     Indication: AUTISM
     Route: 048
     Dates: start: 20100101

REACTIONS (2)
  - KETOACIDOSIS [None]
  - DIABETES MELLITUS [None]
